FAERS Safety Report 8913436 (Version 1)
Quarter: 2012Q4

REPORT INFORMATION
  Report Type: 
  Country: US (occurrence: US)
  Receive Date: 20121119
  Receipt Date: 20121119
  Transmission Date: 20130627
  Serious: No
  Sender: FDA-Public Use
  Company Number: US-PFIZER INC-2012286121

PATIENT
  Age: 44 Year
  Sex: Female
  Weight: 58.96 kg

DRUGS (3)
  1. CARBOPLATIN [Suspect]
     Indication: LUNG CANCER METASTATIC
     Dosage: UNK
  2. XALKORI [Suspect]
     Indication: LUNG CANCER METASTATIC
     Dosage: 250 mg, 2x/day
     Dates: start: 2012
  3. ALIMTA [Suspect]
     Indication: LUNG CANCER METASTATIC
     Dosage: UNK

REACTIONS (2)
  - Disease progression [Unknown]
  - Lung cancer metastatic [Unknown]
